FAERS Safety Report 7038082-3 (Version None)
Quarter: 2010Q4

REPORT INFORMATION
  Report Type: 
  Country: None (occurrence: None)
  Receive Date: 20101011
  Receipt Date: 20101006
  Transmission Date: 20110411
  Serious: Yes (Other)
  Sender: FDA-Public Use
  Company Number: MA-PFIZER INC-2010123612

PATIENT
  Age: 14 Year
  Sex: Male

DRUGS (2)
  1. VFEND [Suspect]
     Indication: FUNGAL INFECTION
     Dosage: 300 MG, 1X/DAY
     Route: 042
  2. VFEND [Suspect]
     Dosage: 200 MG, 1X/DAY
     Route: 042

REACTIONS (2)
  - HALLUCINATION [None]
  - SPEECH DISORDER [None]
